FAERS Safety Report 12917633 (Version 6)
Quarter: 2020Q4

REPORT INFORMATION
  Report Type: Spontaneous
  Country: US (occurrence: US)
  Receive Date: 20161107
  Receipt Date: 20201210
  Transmission Date: 20210113
  Serious: No
  Sender: FDA-Public Use
  Company Number: US-PFIZER INC-2016513046

PATIENT
  Age: 61 Year
  Sex: Female

DRUGS (15)
  1. OPSUMIT [Concomitant]
     Active Substance: MACITENTAN
     Dosage: 10 MG, DAILY
     Route: 048
  2. PROVENTIL HFA [Concomitant]
     Active Substance: ALBUTEROL SULFATE
     Indication: WHEEZING
     Dosage: 2 DF, AS NEEDED (90 MCG/ACTUATION, EVERY 6 HOURS)
     Route: 055
  3. REVATIO [Suspect]
     Active Substance: SILDENAFIL CITRATE
     Indication: COR PULMONALE
  4. ERGOCALCIFEROL. [Concomitant]
     Active Substance: ERGOCALCIFEROL
     Dosage: 100000 IU, WEEKLY (50000 IU, 2 CAPSULES )
     Route: 048
  5. BUTALBITAL COMPOUND W/ CODEINE [Concomitant]
     Indication: PAIN
     Dosage: 1 DF, AS NEEDED (EVERY 6 HOURS)
     Route: 048
  6. REVATIO [Suspect]
     Active Substance: SILDENAFIL CITRATE
     Indication: PULMONARY HYPERTENSION
     Dosage: 40 MG (2 TABLETS), 3X/DAY
     Route: 048
  7. BUTALBITAL COMPOUND W/ CODEINE [Concomitant]
     Indication: MIGRAINE
  8. PROBIOTIC COMPLEX [Concomitant]
     Dosage: UNK
     Route: 048
  9. PROVENTIL [Concomitant]
     Active Substance: ALBUTEROL
     Indication: WHEEZING
     Dosage: 3 ML, AS NEEDED (3 MLS (2.5 MG TOTAL, EVERY 6 HOURS ))
     Route: 055
  10. BUTALBITAL COMPOUND W/ CODEINE [Concomitant]
     Indication: HEADACHE
  11. FERROUS SULFATE. [Concomitant]
     Active Substance: FERROUS SULFATE
     Dosage: 140 MG, DAILY
     Route: 048
  12. VENTOLIN HFA [Concomitant]
     Active Substance: ALBUTEROL SULFATE
     Indication: WHEEZING
     Dosage: 2 DF, AS NEEDED (90 MCG/ACTUATION INHALER, EVERY 6 HOURS)
     Route: 055
  13. ELAVIL [Concomitant]
     Active Substance: AMITRIPTYLINE HYDROCHLORIDE
     Dosage: 25 MG, 1X/DAY (BED TIME)
     Route: 048
  14. CIPRO [Concomitant]
     Active Substance: CIPROFLOXACIN HYDROCHLORIDE
     Dosage: 500 MG, 2X/DAY
     Route: 048
  15. FOLIC ACID B-6 + B-12 [Concomitant]
     Dosage: 1 DF, DAILY [FOLIC ACID 2.5 MG]/ [VIT B6 25 MG] / [VIT B12 1 MG]
     Route: 048

REACTIONS (5)
  - Dyspnoea [Unknown]
  - Product dose omission issue [Unknown]
  - Off label use [Unknown]
  - Product use issue [Unknown]
  - Drug hypersensitivity [Unknown]
